FAERS Safety Report 25623847 (Version 1)
Quarter: 2025Q3

REPORT INFORMATION
  Report Type: Spontaneous
  Country: US (occurrence: US)
  Receive Date: 20250730
  Receipt Date: 20250730
  Transmission Date: 20251021
  Serious: No
  Sender: Tarsus Pharmaceuticals
  Company Number: US-TARSUS PHARMACEUTICALS-TSP-US-2025-000409

PATIENT

DRUGS (4)
  1. XDEMVY [Suspect]
     Active Substance: LOTILANER
     Indication: Ocular demodicosis
     Dosage: 1 DROP, BID
     Route: 047
     Dates: start: 20250329, end: 20250503
  2. XDEMVY [Suspect]
     Active Substance: LOTILANER
     Dates: start: 20250505
  3. PEPCID [Concomitant]
     Active Substance: FAMOTIDINE
     Indication: Prostate cancer
     Dosage: 20 MILLIGRAM, QD
     Route: 065
  4. TAMSULOSIN [Concomitant]
     Active Substance: TAMSULOSIN
     Indication: Prostate cancer
     Route: 065

REACTIONS (4)
  - Therapy interrupted [Unknown]
  - Product leakage [Unknown]
  - Liquid product physical issue [Unknown]
  - Suspected product contamination [Unknown]

NARRATIVE: CASE EVENT DATE: 20250504
